FAERS Safety Report 7133386-8 (Version None)
Quarter: 2010Q4

REPORT INFORMATION
  Report Type: 
  Country: None (occurrence: None)
  Receive Date: 20101202
  Receipt Date: 20101122
  Transmission Date: 20110411
  Serious: Yes (Other)
  Sender: FDA-Public Use
  Company Number: US-GENENTECH-310097

PATIENT
  Age: 6 Year
  Sex: Male

DRUGS (2)
  1. NUTROPIN [Suspect]
     Indication: GROWTH HORMONE DEFICIENCY
  2. NUTROPIN [Suspect]
     Indication: HYPOPITUITARISM

REACTIONS (2)
  - COSTELLO SYNDROME [None]
  - HYPERTROPHIC CARDIOMYOPATHY [None]
